FAERS Safety Report 9235700 (Version 2)
Quarter: 2013Q2

REPORT INFORMATION
  Report Type: Spontaneous
  Country: US (occurrence: None)
  Receive Date: 20121031
  Receipt Date: 20130107
  Transmission Date: 20140414
  Serious: Yes (Hospitalization)
  Sender: FDA-Public Use
  Company Number: PHEH2012US016437

PATIENT
  Age: 56 Year
  Sex: Female
  Weight: 51.7 kg

DRUGS (6)
  1. GILENYA [Suspect]
     Indication: MULTIPLE SCLEROSIS
     Route: 048
     Dates: start: 20110725, end: 20120612
  2. DITROPAN (OXYBUTYNIN HYDROCHLORIDE) [Concomitant]
  3. CRESTOR (ROSUVASTATIN CALCIUM) [Concomitant]
  4. FORTEO (TERIPARATIDE) [Concomitant]
  5. BACLOFEN (BACLOFEN) [Concomitant]
  6. ADVIL (MEFENAMIC ACID) [Concomitant]

REACTIONS (12)
  - Cellulitis [None]
  - White blood cell count increased [None]
  - Red blood cell count decreased [None]
  - Haemoglobin decreased [None]
  - Haematocrit decreased [None]
  - Thrombocytopenia [None]
  - Neutrophil count increased [None]
  - Eosinophil count increased [None]
  - Fibrin D dimer increased [None]
  - Blood creatinine decreased [None]
  - Leukopenia [None]
  - Lymphocyte count decreased [None]
